FAERS Safety Report 5981296-1 (Version None)
Quarter: 2008Q4

REPORT INFORMATION
  Report Type: 
  Country: None (occurrence: None)
  Receive Date: 20081205
  Receipt Date: 20081125
  Transmission Date: 20090506
  Serious: Yes (Hospitalization)
  Sender: FDA-Public Use
  Company Number: AR-AMGEN-US320854

PATIENT
  Sex: Female

DRUGS (1)
  1. CINACALCET - BLINDED [Suspect]
     Indication: HYPERPARATHYROIDISM SECONDARY
     Route: 048
     Dates: start: 20070702, end: 20081118

REACTIONS (1)
  - GASTROINTESTINAL HAEMORRHAGE [None]
